FAERS Safety Report 21730809 (Version 1)
Quarter: 2022Q4

REPORT INFORMATION
  Report Type: Spontaneous
  Country: US (occurrence: None)
  Receive Date: 20221215
  Receipt Date: 20221215
  Transmission Date: 20230113
  Serious: Yes (Life-Threatening, Hospitalization, Other)
  Sender: FDA-Public Use
  Company Number: US-AstraZeneca-2022A351949

PATIENT
  Age: 30 Year
  Sex: Female

DRUGS (6)
  1. PROPRANOLOL HYDROCHLORIDE [Suspect]
     Active Substance: PROPRANOLOL HYDROCHLORIDE
     Indication: Suicide attempt
     Dosage: BOTTLE
     Route: 048
  2. LAMOTRIGINE [Suspect]
     Active Substance: LAMOTRIGINE
     Indication: Suicide attempt
     Dosage: BOTTLE
     Route: 048
  3. SERTRALINE [Suspect]
     Active Substance: SERTRALINE HYDROCHLORIDE
     Indication: Suicide attempt
     Dosage: BOTTLE
     Route: 048
  4. GUANFACINE [Suspect]
     Active Substance: GUANFACINE
     Indication: Suicide attempt
     Dosage: BOTTLE
     Route: 048
  5. ZIPRASIDONE [Suspect]
     Active Substance: ZIPRASIDONE
     Indication: Suicide attempt
     Dosage: BOTTLE
     Route: 048
  6. HYDROXYZINE [Suspect]
     Active Substance: HYDROXYZINE HYDROCHLORIDE
     Indication: Suicide attempt
     Dosage: BOTTLE
     Route: 048

REACTIONS (6)
  - Bradypnoea [Recovered/Resolved]
  - Coma [Recovered/Resolved]
  - Cerebral disorder [Recovered/Resolved]
  - Sinus bradycardia [Recovered/Resolved]
  - Distributive shock [Recovered/Resolved]
  - Intentional overdose [Recovered/Resolved]
